FAERS Safety Report 21720644 (Version 1)
Quarter: 2022Q4

REPORT INFORMATION
  Report Type: Spontaneous
  Country: US (occurrence: US)
  Receive Date: 20221213
  Receipt Date: 20221213
  Transmission Date: 20230113
  Serious: No
  Sender: FDA-Public Use
  Company Number: US-STRIDES ARCOLAB LIMITED-2022SP012422

PATIENT
  Age: 26 Year
  Sex: Female

DRUGS (1)
  1. PREDNISOLONE [Suspect]
     Active Substance: PREDNISOLONE
     Indication: Inflammatory bowel disease
     Dosage: UNK
     Route: 065

REACTIONS (4)
  - Night sweats [Unknown]
  - Nightmare [Unknown]
  - Anxiety [Unknown]
  - Arthralgia [Unknown]
